FAERS Safety Report 5739438-9 (Version None)
Quarter: 2008Q2

REPORT INFORMATION
  Report Type: 
  Country: None (occurrence: None)
  Receive Date: 20080513
  Receipt Date: 20080430
  Transmission Date: 20081010
  Serious: Yes (Hospitalization, Other)
  Sender: FDA-Public Use
  Company Number: TRP_01042_2008

PATIENT
  Sex: Female
  Weight: 48.0813 kg

DRUGS (8)
  1. RIBASHERE/RIBAVIRIN/THREE RIVERS PHARMA 2B/SCHERING-PLOUGH [Suspect]
     Indication: HEPATITIS C
     Dosage: (800 MG QD ORAL)
     Route: 048
     Dates: start: 20070913, end: 20080110
  2. PEG-INTRON [Suspect]
     Indication: HEPATITIS C
     Dosage: (64 MG 1X/WEEK SUBCUTANEOUS)
     Route: 058
     Dates: start: 20070913, end: 20080110
  3. PEG-INTRON [Suspect]
     Indication: HEPATITIS C
     Dosage: (64 MG 1X/WEEK SUBCUTANEOUS)
     Route: 058
     Dates: start: 20070913, end: 20080110
  4. FUROSEMIDE [Concomitant]
  5. TOPIRAMATE [Concomitant]
  6. PERCOCET [Concomitant]
  7. CULTURELLE [Concomitant]
  8. ACIDOPHILUS [Concomitant]

REACTIONS (20)
  - ANAEMIA [None]
  - BLOOD GLUCOSE INCREASED [None]
  - BLOOD PHOSPHORUS DECREASED [None]
  - BRAIN HERNIATION [None]
  - BRAIN OEDEMA [None]
  - CAROTID ARTERY STENOSIS [None]
  - CEREBRAL ARTERY OCCLUSION [None]
  - CEREBRAL ARTERY THROMBOSIS [None]
  - CEREBRAL INFARCTION [None]
  - CEREBROVASCULAR ACCIDENT [None]
  - DEEP VEIN THROMBOSIS [None]
  - DYSPHAGIA [None]
  - EXTENSOR PLANTAR RESPONSE [None]
  - HEADACHE [None]
  - HEMIANOPIA HOMONYMOUS [None]
  - HEMIPLEGIA [None]
  - HEMISENSORY NEGLECT [None]
  - INTRACRANIAL PRESSURE INCREASED [None]
  - MITRAL VALVE INCOMPETENCE [None]
  - STREPTOCOCCAL IDENTIFICATION TEST POSITIVE [None]
